FAERS Safety Report 8595778-X (Version None)
Quarter: 2012Q3

REPORT INFORMATION
  Report Type: 
  Country: None (occurrence: None)
  Receive Date: 20120815
  Receipt Date: 20120813
  Transmission Date: 20120928
  Serious: Yes (Death)
  Sender: FDA-Public Use
  Company Number: US-ELI_LILLY_AND_COMPANY-US201208003872

PATIENT
  Age: 67 Year
  Sex: Female

DRUGS (2)
  1. EFFIENT [Suspect]
     Indication: ACUTE MYOCARDIAL INFARCTION
     Dosage: UNK
     Dates: start: 20120808
  2. INTEGRILIN [Concomitant]
     Dosage: UNK
     Dates: start: 20120808

REACTIONS (1)
  - DEATH [None]
